FAERS Safety Report 18689084 (Version 3)
Quarter: 2021Q1

REPORT INFORMATION
  Report Type: Report from Study
  Country: US (occurrence: US)
  Receive Date: 20201231
  Receipt Date: 20210208
  Transmission Date: 20210419
  Serious: Yes (Hospitalization)
  Sender: FDA-Public Use
  Company Number: US-CHIASMA-2020CHI00055

PATIENT
  Age: 70 Year
  Sex: Male
  Weight: 112.93 kg

DRUGS (4)
  1. MYCAPSSA [Suspect]
     Active Substance: OCTREOTIDE
     Indication: ACROMEGALY
     Dosage: 40 MG PER DAY
     Route: 048
     Dates: start: 2019, end: 20201213
  2. VITAMIN B12 [Concomitant]
     Active Substance: CYANOCOBALAMIN
  3. SOMATULINE [Suspect]
     Active Substance: LANREOTIDE ACETATE
     Indication: ACROMEGALY
  4. MYCAPSSA [Suspect]
     Active Substance: OCTREOTIDE
     Dosage: 20 MG, 2X/DAY
     Route: 048
     Dates: start: 20210124

REACTIONS (8)
  - Chest pain [Unknown]
  - Obesity [Not Recovered/Not Resolved]
  - Cholelithiasis [Recovered/Resolved]
  - Cholecystitis acute [Recovered/Resolved]
  - Anaemia [Not Recovered/Not Resolved]
  - Cholecystitis infective [Recovered/Resolved]
  - Pancreatic disorder [Not Recovered/Not Resolved]
  - Sleep apnoea syndrome [Not Recovered/Not Resolved]

NARRATIVE: CASE EVENT DATE: 20201214
